FAERS Safety Report 16208138 (Version 1)
Quarter: 2019Q2

REPORT INFORMATION
  Report Type: Spontaneous
  Country: US (occurrence: US)
  Receive Date: 20190417
  Receipt Date: 20190417
  Transmission Date: 20190711
  Serious: Yes (Other)
  Sender: FDA-Public Use
  Company Number: US-BAYER-2019-073161

PATIENT
  Age: 78 Year
  Sex: Female
  Weight: 73 kg

DRUGS (2)
  1. VITAMINS NOS [Concomitant]
     Active Substance: VITAMINS
     Dosage: UNK UNK, QD
  2. ALEVE [Suspect]
     Active Substance: NAPROXEN SODIUM
     Indication: PAIN
     Dosage: 2 DF, PRN
     Route: 048
     Dates: end: 20190405

REACTIONS (5)
  - Dysphagia [Recovered/Resolved]
  - Choking [Unknown]
  - Oesophageal discomfort [Recovered/Resolved]
  - Gastrointestinal ulcer [Not Recovered/Not Resolved]
  - Drug intolerance [Unknown]

NARRATIVE: CASE EVENT DATE: 20190403
